FAERS Safety Report 8161471-0 (Version None)
Quarter: 2012Q1

REPORT INFORMATION
  Report Type: 
  Country: None (occurrence: None)
  Receive Date: 20120224
  Receipt Date: 20110714
  Transmission Date: 20120608
  Serious: No
  Sender: FDA-Public Use
  Company Number: US-MYLANLABS-2011S1014900

PATIENT
  Sex: Male

DRUGS (4)
  1. ALPRAZOLAM [Suspect]
  2. ALPRAZOLAM [Suspect]
     Indication: ANXIETY
  3. ALPRAZOLAM [Suspect]
  4. ALPRAZOLAM [Suspect]

REACTIONS (3)
  - ADVERSE EVENT [None]
  - ANXIETY [None]
  - DRUG INEFFECTIVE [None]
